FAERS Safety Report 6069296-7 (Version None)
Quarter: 2009Q1

REPORT INFORMATION
  Report Type: 
  Country: None (occurrence: None)
  Receive Date: 20090206
  Receipt Date: 20090128
  Transmission Date: 20090719
  Serious: Yes (Other)
  Sender: FDA-Public Use
  Company Number: US-PFIZER INC-2008101222

PATIENT
  Sex: Female
  Weight: 78.005 kg

DRUGS (6)
  1. DILANTIN [Suspect]
     Indication: TEMPORAL LOBE EPILEPSY
     Dosage: 100 MG, 3X/DAY
     Dates: start: 19630101
  2. DILANTIN [Suspect]
     Route: 042
  3. DILANTIN [Suspect]
     Dosage: 50 MG, UNK
  4. ALL OTHER THERAPEUTIC PRODUCTS [Concomitant]
     Indication: ASTHMA
  5. FOLIC ACID [Concomitant]
  6. CORTICOSTEROIDS [Concomitant]

REACTIONS (20)
  - ANTICONVULSANT DRUG LEVEL DECREASED [None]
  - ANTICONVULSANT DRUG LEVEL INCREASED [None]
  - AURA [None]
  - BURNING SENSATION [None]
  - DEPRESSION [None]
  - DERMATITIS [None]
  - GINGIVITIS [None]
  - GRAND MAL CONVULSION [None]
  - HYPERTENSION [None]
  - HYPERTRICHOSIS [None]
  - HYSTERECTOMY [None]
  - INFLAMMATION [None]
  - LETHARGY [None]
  - LIVER DISORDER [None]
  - LIVER FUNCTION TEST ABNORMAL [None]
  - NAUSEA [None]
  - NERVOUS SYSTEM DISORDER [None]
  - SWELLING [None]
  - VOMITING [None]
  - WEIGHT INCREASED [None]
